FAERS Safety Report 8141494-8 (Version None)
Quarter: 2012Q1

REPORT INFORMATION
  Report Type: 
  Country: None (occurrence: None)
  Receive Date: 20120216
  Receipt Date: 20120206
  Transmission Date: 20120608
  Serious: Yes (Other)
  Sender: FDA-Public Use
  Company Number: JP-ROCHE-1040113

PATIENT
  Sex: Male

DRUGS (5)
  1. LEVOFLOXACIN [Concomitant]
     Dates: start: 20100201, end: 20100201
  2. GATIFLOXACIN [Concomitant]
     Dates: start: 20090901, end: 20100101
  3. RANIBIZUMAB [Suspect]
     Route: 050
     Dates: start: 20100113, end: 20100113
  4. RANIBIZUMAB [Suspect]
     Indication: AGE-RELATED MACULAR DEGENERATION
     Route: 050
     Dates: start: 20090917
  5. RANIBIZUMAB [Suspect]
     Route: 050
     Dates: start: 20091015

REACTIONS (1)
  - HEPATIC NEOPLASM MALIGNANT [None]
